FAERS Safety Report 26079570 (Version 1)
Quarter: 2025Q4

REPORT INFORMATION
  Report Type: Spontaneous
  Country: US (occurrence: US)
  Receive Date: 20251123
  Receipt Date: 20251123
  Transmission Date: 20260118
  Serious: Yes (Other)
  Sender: SANOFI AVENTIS
  Company Number: US-SA-2025SA349664

PATIENT
  Sex: Male

DRUGS (12)
  1. DUPIXENT [Suspect]
     Active Substance: DUPILUMAB
     Indication: Chronic obstructive pulmonary disease
     Dosage: 300 MG, QOW
     Route: 058
  2. FLUOXETINE HYDROCHLORIDE [Concomitant]
     Active Substance: FLUOXETINE HYDROCHLORIDE
  3. ARFORMOTEROL [Concomitant]
     Active Substance: ARFORMOTEROL
  4. BACLOFEN [Concomitant]
     Active Substance: BACLOFEN
  5. BUDESONIDE [Concomitant]
     Active Substance: BUDESONIDE
  6. HYDROCODONE [Concomitant]
     Active Substance: HYDROCODONE
  7. IPRATROPIUM [Concomitant]
     Active Substance: IPRATROPIUM
  8. MONTELUKAST [Concomitant]
     Active Substance: MONTELUKAST
  9. VITAMINS NOS [Concomitant]
     Active Substance: VITAMINS
  10. ROFLUMILAST [Concomitant]
     Active Substance: ROFLUMILAST
  11. VITAMIN D NOS [Concomitant]
     Active Substance: CHOLECALCIFEROL\ERGOCALCIFEROL
  12. ZINC [Concomitant]
     Active Substance: ZINC

REACTIONS (7)
  - Pneumonia [Not Recovered/Not Resolved]
  - Nasopharyngitis [Not Recovered/Not Resolved]
  - Pain [Not Recovered/Not Resolved]
  - Depressed mood [Not Recovered/Not Resolved]
  - Psychiatric symptom [Not Recovered/Not Resolved]
  - Dyspnoea [Not Recovered/Not Resolved]
  - Diarrhoea [Not Recovered/Not Resolved]
